FAERS Safety Report 17170468 (Version 2)
Quarter: 2019Q4

REPORT INFORMATION
  Report Type: Spontaneous
  Country: US (occurrence: US)
  Receive Date: 20191218
  Receipt Date: 20191220
  Transmission Date: 20200122
  Serious: Yes (Hospitalization)
  Sender: FDA-Public Use
  Company Number: US-SAOL THERAPEUTICS-2019SAO00499

PATIENT
  Age: 21 Year
  Sex: Female
  Weight: 54.42 kg

DRUGS (6)
  1. LIORESAL [Suspect]
     Active Substance: BACLOFEN
     Dosage: UNK; DOSE DECREASED BY 15 %
     Dates: start: 20191203, end: 20191204
  2. GABAPENTIN. [Suspect]
     Active Substance: GABAPENTIN
     Dosage: UNK
     Dates: start: 20191204
  3. LIORESAL [Suspect]
     Active Substance: BACLOFEN
     Dosage: 436 ?G, 1X/DAY; 18.2 ?G/HR
     Route: 037
     Dates: start: 20191204
  4. GABAPENTIN. [Suspect]
     Active Substance: GABAPENTIN
     Dosage: UNK
  5. LIORESAL [Suspect]
     Active Substance: BACLOFEN
     Indication: MUSCLE SPASTICITY
     Dosage: UNK; DOSE AND CONCENTRATION INCREASED
     Route: 037
  6. LIORESAL [Suspect]
     Active Substance: BACLOFEN
     Indication: MUSCLE SPASTICITY
     Dosage: UNK
     Dates: start: 20191126, end: 20191203

REACTIONS (8)
  - Dyspnoea [Unknown]
  - Muscle discomfort [Unknown]
  - Back pain [Unknown]
  - Hallucination [Unknown]
  - Overdose [Unknown]
  - Muscle spasticity [Unknown]
  - Abnormal behaviour [Unknown]
  - Movement disorder [Unknown]

NARRATIVE: CASE EVENT DATE: 20191126
